APPROVED DRUG PRODUCT: METHYLPHENIDATE HYDROCHLORIDE
Active Ingredient: METHYLPHENIDATE HYDROCHLORIDE
Strength: 54MG
Dosage Form/Route: TABLET, EXTENDED RELEASE;ORAL
Application: A091695 | Product #004 | TE Code: BX
Applicant: LANNETT CO INC
Approved: Sep 23, 2013 | RLD: No | RS: No | Type: RX